FAERS Safety Report 26176799 (Version 1)
Quarter: 2025Q4

REPORT INFORMATION
  Report Type: Spontaneous
  Country: RU (occurrence: RU)
  Receive Date: 20251218
  Receipt Date: 20251218
  Transmission Date: 20260118
  Serious: Yes (Hospitalization, Other)
  Sender: MERCK KGAA
  Company Number: RU-Merck Healthcare KGaA-2025064510

PATIENT
  Age: 27 Year
  Sex: Female

DRUGS (2)
  1. MAVENCLAD [Suspect]
     Active Substance: CLADRIBINE
     Indication: Multiple sclerosis
     Dosage: YEAR ONE MONTH ONE THERAPY, TWO TABLET ON DAY 1  AND ONE TABLET ON DAY 2 TO 5
     Dates: start: 20250220
  2. MAVENCLAD [Suspect]
     Active Substance: CLADRIBINE
     Dosage: YEAR ONE MONTH TWO THERAPY, TWO TABLET ON DAY 1  AND ONE TABLET ON DAY 2 TO 5
     Dates: end: 20250327

REACTIONS (2)
  - Lymphocyte count decreased [Unknown]
  - Gastroenteritis adenovirus [Recovered/Resolved]

NARRATIVE: CASE EVENT DATE: 20250816
